FAERS Safety Report 23548445 (Version 1)
Quarter: 2024Q1

REPORT INFORMATION
  Report Type: Other
  Country: JP (occurrence: None)
  Receive Date: 20240221
  Receipt Date: 20240221
  Transmission Date: 20240409
  Serious: Yes (Other)
  Sender: FDA-Public Use
  Company Number: JP-ROCHE-3505368

PATIENT
  Age: 68 Year
  Sex: Female

DRUGS (3)
  1. BEVACIZUMAB [Suspect]
     Active Substance: BEVACIZUMAB
     Indication: Glioblastoma
     Route: 042
  2. TEMOZOLOMIDE [Suspect]
     Active Substance: TEMOZOLOMIDE
     Indication: Glioblastoma
     Dosage: MAINTENANCE THERAPY 150MG/M2 ON DAYS 1-5.
     Route: 065
  3. TEMOZOLOMIDE [Suspect]
     Active Substance: TEMOZOLOMIDE
     Dosage: FOR SIX WEEKS
     Route: 065

REACTIONS (2)
  - Post procedural haematoma [Recovered/Resolved]
  - Thrombocytopenia [Recovered/Resolved]
